FAERS Safety Report 7115286-2 (Version None)
Quarter: 2010Q4

REPORT INFORMATION
  Report Type: 
  Country: None (occurrence: None)
  Receive Date: 20101122
  Receipt Date: 20101112
  Transmission Date: 20110411
  Serious: Yes (Other)
  Sender: FDA-Public Use
  Company Number: PHHY2010BR24372

PATIENT
  Sex: Female

DRUGS (1)
  1. GALVUS MET [Suspect]
     Dosage: 50/850 MG
     Route: 048

REACTIONS (3)
  - ASTHENIA [None]
  - VOMITING [None]
  - WEIGHT DECREASED [None]
